FAERS Safety Report 9203185 (Version 1)
Quarter: 2013Q1

REPORT INFORMATION
  Report Type: Spontaneous
  Country: US (occurrence: None)
  Receive Date: 20120709
  Receipt Date: 20120709
  Transmission Date: 20140127
  Serious: Yes (Other)
  Sender: FDA-Public Use
  Company Number: PHHY2010US76621

PATIENT
  Age: 77 Year
  Sex: Male

DRUGS (1)
  1. GLEEVEC (IMATINIB) UNKNOWN [Suspect]
     Indication: CHRONIC MYELOID LEUKAEMIA
     Route: 048
     Dates: start: 20100605

REACTIONS (7)
  - White blood cell count decreased [None]
  - Red blood cell count decreased [None]
  - Flatulence [None]
  - Diarrhoea [None]
  - Haemoglobin decreased [None]
  - Platelet count decreased [None]
  - Nausea [None]
